FAERS Safety Report 4861150-9 (Version None)
Quarter: 2005Q4

REPORT INFORMATION
  Report Type: 
  Country: None (occurrence: None)
  Receive Date: 20051216
  Receipt Date: 20051128
  Transmission Date: 20060501
  Serious: Yes (Death, Hospitalization)
  Sender: FDA-Public Use
  Company Number: USA0511112667

PATIENT
  Age: 56 Year
  Sex: Female
  Weight: 61.2356 kg

DRUGS (14)
  1. CYMBALTA [Suspect]
     Indication: DEPRESSION
     Dosage: 60 MG, DAILY (1/D), ORAL
     Route: 048
     Dates: start: 20041123, end: 20050915
  2. CYMBALTA [Suspect]
     Indication: DEPRESSION
     Dosage: 60 MG, DAILY (1/D), ORAL
     Route: 048
     Dates: start: 20050915, end: 20051019
  3. MS CONTIN [Concomitant]
  4. SYNTHROID [Concomitant]
  5. CELEBREX [Concomitant]
  6. MIRTAZAPINE [Concomitant]
  7. GABAPENTIN [Concomitant]
  8. LORAZEPAM [Concomitant]
  9. METHOCARBAMOL [Concomitant]
  10. PROMETHAZINE [Concomitant]
  11. TRAMADOL HCL [Concomitant]
  12. HYDROCODONE BITARTRATE + ACETAMINOPHEN [Concomitant]
  13. EXTRA STRENGTH TYLENOL [Concomitant]
  14. ZOLOFT [Concomitant]

REACTIONS (39)
  - ALPHA 2 GLOBULIN DECREASED [None]
  - ASCITES [None]
  - ASTHENIA [None]
  - ATELECTASIS [None]
  - AUTOIMMUNE HEPATITIS [None]
  - BACK PAIN [None]
  - BETA GLOBULIN DECREASED [None]
  - BLOOD AMYLASE INCREASED [None]
  - CHOLELITHIASIS [None]
  - CHROMATURIA [None]
  - DRUG TOXICITY [None]
  - DYSURIA [None]
  - FALL [None]
  - FATIGUE [None]
  - HALLUCINATION [None]
  - HEADACHE [None]
  - HEPATIC CIRRHOSIS [None]
  - HEPATIC ENCEPHALOPATHY [None]
  - HEPATIC FAILURE [None]
  - HEPATIC FIBROSIS [None]
  - HEPATIC NECROSIS [None]
  - HEPATIC STEATOSIS [None]
  - HEPATOTOXICITY [None]
  - HYPOKALAEMIA [None]
  - HYPONATRAEMIA [None]
  - IMMUNOGLOBULINS INCREASED [None]
  - INTERNATIONAL NORMALISED RATIO INCREASED [None]
  - JAUNDICE CHOLESTATIC [None]
  - LIPASE INCREASED [None]
  - NAUSEA [None]
  - NECK PAIN [None]
  - NIGHT SWEATS [None]
  - PLEURAL EFFUSION [None]
  - PORTAL HYPERTENSION [None]
  - SHOULDER PAIN [None]
  - SMOOTH MUSCLE ANTIBODY POSITIVE [None]
  - SPLENOMEGALY [None]
  - THIRST [None]
  - URINARY TRACT INFECTION [None]
